FAERS Safety Report 8919592 (Version 3)
Quarter: 2013Q1

REPORT INFORMATION
  Report Type: Spontaneous
  Country: US (occurrence: US)
  Receive Date: 20121121
  Receipt Date: 20130116
  Transmission Date: 20140127
  Serious: Yes (Other)
  Sender: FDA-Public Use
  Company Number: US-PFIZER INC-2012289496

PATIENT
  Age: 9 Year
  Sex: Male

DRUGS (1)
  1. EPIPEN JR [Suspect]
     Indication: ALLERGY TO ARTHROPOD STING
     Dosage: 0.15 MG, AS NEEDED
     Dates: start: 20120622, end: 20120622

REACTIONS (3)
  - Accidental exposure to product [Unknown]
  - Dyspnoea [Not Recovered/Not Resolved]
  - Cough [Not Recovered/Not Resolved]
